FAERS Safety Report 10056446 (Version 1)
Quarter: 2014Q2

REPORT INFORMATION
  Report Type: Spontaneous
  Country: US (occurrence: US)
  Receive Date: 20140403
  Receipt Date: 20140403
  Transmission Date: 20141212
  Serious: No
  Sender: FDA-Public Use
  Company Number: US-BAXTER-2014BAX014814

PATIENT
  Age: 67 Year
  Sex: 0

DRUGS (3)
  1. GAMMAGARD LIQUID [Suspect]
     Indication: PRIMARY IMMUNODEFICIENCY SYNDROME
     Route: 042
     Dates: start: 2011
  2. TYLENOL [Concomitant]
     Indication: PREMEDICATION
  3. ADVIL [Concomitant]
     Indication: PREMEDICATION

REACTIONS (3)
  - Dehydration [Unknown]
  - Headache [Unknown]
  - Feeling drunk [Unknown]
